FAERS Safety Report 16257718 (Version 1)
Quarter: 2019Q2

REPORT INFORMATION
  Report Type: Spontaneous
  Country: SK (occurrence: SK)
  Receive Date: 20190430
  Receipt Date: 20190430
  Transmission Date: 20190711
  Serious: Yes (Hospitalization)
  Sender: FDA-Public Use
  Company Number: SK-TEVA-2019-SK-1042619

PATIENT
  Age: 16 Year
  Sex: Female
  Weight: 79 kg

DRUGS (3)
  1. RISPEN [Concomitant]
     Active Substance: RISPERIDONE
  2. FEVARIN [Suspect]
     Active Substance: FLUVOXAMINE MALEATE
     Indication: COMPLETED SUICIDE
     Route: 048
  3. CITALOPRAM [Suspect]
     Active Substance: CITALOPRAM HYDROBROMIDE
     Route: 065

REACTIONS (4)
  - Nystagmus [Recovered/Resolved]
  - Extrapyramidal disorder [Recovered/Resolved]
  - Dyskinesia [Recovered/Resolved]
  - Systolic hypertension [Recovered/Resolved]

NARRATIVE: CASE EVENT DATE: 20181104
